FAERS Safety Report 6595242-3 (Version None)
Quarter: 2010Q1

REPORT INFORMATION
  Report Type: 
  Country: None (occurrence: None)
  Receive Date: 20100212
  Receipt Date: 20100126
  Transmission Date: 20100710
  Serious: No
  Sender: FDA-Public Use
  Company Number: DSU-2010-00290

PATIENT
  Age: 53 Year
  Sex: Female
  Weight: 59.8748 kg

DRUGS (1)
  1. WELCHOL [Suspect]
     Indication: HYPERLIPIDAEMIA
     Dosage: 1250 MG (625 MG, BID), PER ORAL
     Route: 048
     Dates: start: 20091201, end: 20100101

REACTIONS (2)
  - FOREIGN BODY [None]
  - OESOPHAGEAL OBSTRUCTION [None]
